FAERS Safety Report 20041391 (Version 1)
Quarter: 2021Q4

REPORT INFORMATION
  Report Type: Spontaneous
  Country: MY (occurrence: MY)
  Receive Date: 20211107
  Receipt Date: 20211107
  Transmission Date: 20220303
  Serious: Yes (Death, Life-Threatening, Hospitalization, Other)
  Sender: FDA-Public Use
  Company Number: None

PATIENT
  Age: 61 Year
  Sex: Female

DRUGS (10)
  1. PREDNISOLONE [Suspect]
     Active Substance: PREDNISOLONE
     Indication: Extranodal marginal zone B-cell lymphoma (MALT type) stage IV
     Dosage: UNK, 6 CYCLE, R-CHOP
     Route: 065
  2. PREDNISOLONE [Suspect]
     Active Substance: PREDNISOLONE
     Indication: Non-Hodgkin^s lymphoma stage IV
  3. DOXORUBICIN [Suspect]
     Active Substance: DOXORUBICIN
     Indication: Extranodal marginal zone B-cell lymphoma (MALT type) stage IV
     Dosage: UNK, 6 CYCLE, R-CHOP
     Route: 065
  4. DOXORUBICIN [Suspect]
     Active Substance: DOXORUBICIN
     Indication: Non-Hodgkin^s lymphoma stage IV
  5. CYCLOPHOSPHAMIDE [Suspect]
     Active Substance: CYCLOPHOSPHAMIDE
     Indication: Non-Hodgkin^s lymphoma stage IV
     Dosage: UNK, 6 CYCLE, R-CHOP
     Route: 065
  6. CYCLOPHOSPHAMIDE [Suspect]
     Active Substance: CYCLOPHOSPHAMIDE
     Indication: Extranodal marginal zone B-cell lymphoma (MALT type) stage IV
  7. RITUXIMAB [Suspect]
     Active Substance: RITUXIMAB
     Indication: Extranodal marginal zone B-cell lymphoma (MALT type) stage IV
     Dosage: UNK, 6 CYCLE, R-CHOP
     Route: 065
  8. RITUXIMAB [Suspect]
     Active Substance: RITUXIMAB
     Indication: Non-Hodgkin^s lymphoma stage IV
     Dosage: UNK, CYCLICAL (SECOND DOSE)
     Route: 065
  9. VINCRISTINE [Suspect]
     Active Substance: VINCRISTINE
     Indication: Extranodal marginal zone B-cell lymphoma (MALT type) stage IV
     Dosage: UNK, 6 CYCLE, R-CHOP
     Route: 065
  10. VINCRISTINE [Suspect]
     Active Substance: VINCRISTINE
     Indication: Non-Hodgkin^s lymphoma stage IV

REACTIONS (3)
  - Acute on chronic liver failure [Fatal]
  - Acute hepatic failure [Fatal]
  - Hepatitis B reactivation [Fatal]
